FAERS Safety Report 9478213 (Version 1)
Quarter: 2013Q3

REPORT INFORMATION
  Report Type: Spontaneous
  Country: DK (occurrence: None)
  Receive Date: 20130809
  Receipt Date: 20130809
  Transmission Date: 20140515
  Serious: Yes (Life-Threatening, Hospitalization)
  Sender: FDA-Public Use
  Company Number: 2013037204

PATIENT
  Age: 68 Year
  Sex: Male

DRUGS (11)
  1. PRIVIGEN [Suspect]
     Indication: GUILLAIN-BARRE SYNDROME
     Dosage: 28 G QD, DOSE: 28 G/DAY DURING 5 DAYS, 100 MG/ML, INTRAVENOUS (NOT OTHERWISE SPECIFIED)
     Route: 042
     Dates: start: 20130702
  2. CEFUROXIME (CEFUROXIME) [Concomitant]
  3. METRONIDAZOLE (METRONIDAZOLE0 [Concomitant]
  4. MORFIN /00036301/ (MORPHINE) [Concomitant]
  5. PARACETAMOL (PARACETAMOL) [Concomitant]
  6. AMITRIPTYLINE (AMITRIPTYLINE HYDROCHLORIDE) [Concomitant]
  7. NORTRIPTYLINE (NORTRIPTYLINE HYDROCHLORIDE) [Concomitant]
  8. REMOFENTANIL HYDROCHLORIDE (REMIFENTANIL HYDROCHLORIDE) [Concomitant]
  9. PANTOPRAZOLE (PANTOPRAZOLE) [Concomitant]
  10. ACTILAX (ACTILAX) [Concomitant]
  11. KALIUMCHLORID (POTASSIUM CHLORIDE) [Concomitant]

REACTIONS (4)
  - Haemolytic anaemia [None]
  - Guillain-Barre syndrome [None]
  - Condition aggravated [None]
  - Off label use [None]
